FAERS Safety Report 5848626-2 (Version None)
Quarter: 2008Q3

REPORT INFORMATION
  Report Type: 
  Country: None (occurrence: None)
  Receive Date: 20080818
  Receipt Date: 20080806
  Transmission Date: 20090109
  Serious: Yes (Hospitalization, Other)
  Sender: FDA-Public Use
  Company Number: BE-ELI_LILLY_AND_COMPANY-BE200708005261

PATIENT
  Sex: Female

DRUGS (15)
  1. CYMBALTA [Suspect]
     Indication: DEPRESSION
     Dosage: 60 MG, DAILY (1/D)
     Route: 048
     Dates: start: 20070821, end: 20070822
  2. AMLOR [Concomitant]
     Indication: HYPERTENSION
     Dosage: 5 MG, DAILY (1/D)
     Route: 048
  3. ZANTAC [Concomitant]
     Indication: PROPHYLAXIS
     Dosage: 150 MG, UNK
     Route: 048
  4. DEPAKENE [Concomitant]
     Dosage: 300 MG, 3/D
     Route: 048
  5. CARVEDILOL [Concomitant]
     Indication: HYPERTENSION
     Dosage: 12.5 MG, DAILY (1/D)
     Route: 048
  6. IRBESARTAN [Concomitant]
     Indication: HYPERTENSION
     Dosage: 150/12.5 MG, DAILY (1/D)
     Route: 048
  7. FRAXIPARINE [Concomitant]
     Indication: THROMBOSIS PROPHYLAXIS
     Dosage: 0.3 ML, DAILY (1/D)
     Route: 058
  8. CIPROFLOXACIN [Concomitant]
     Indication: URINARY TRACT INFECTION
     Dosage: 500 MG, 2/D
     Route: 048
     Dates: start: 20070816, end: 20070822
  9. REDOMEX [Concomitant]
     Dosage: 25 MG, UNK
     Dates: start: 20070822
  10. CRANBERRY [Concomitant]
     Dosage: UNK, DAILY (1/D)
     Route: 048
  11. LEVOTHYROXINE SODIUM [Concomitant]
     Dosage: 100 UG, DAILY (1/D)
     Route: 048
  12. SERLAIN [Concomitant]
     Indication: DEPRESSION
     Dosage: 50 MG, DAILY (1/D)
     Route: 048
  13. LORAMET [Concomitant]
     Dosage: 0.5 U, EACH EVENING
     Dates: start: 20070821
  14. MOVICOL [Concomitant]
  15. LYSOMUCIL [Concomitant]

REACTIONS (3)
  - COMA [None]
  - HYPOTENSION [None]
  - SYNCOPE [None]
